FAERS Safety Report 6460656-9 (Version None)
Quarter: 2009Q4

REPORT INFORMATION
  Report Type: 
  Country: None (occurrence: None)
  Receive Date: 20091125
  Receipt Date: 20091125
  Transmission Date: 20100525
  Serious: No
  Sender: FDA-Public Use
  Company Number: None

PATIENT
  Age: 56 Year
  Sex: Female
  Weight: 65.7716 kg

DRUGS (3)
  1. RAPIDMELTS WITH VITAMIN C [Suspect]
     Dosage: Q3 HOURS 6 DAYS
     Dates: start: 20091030, end: 20091104
  2. METHADONE HCL [Concomitant]
  3. IBUPROFEN [Concomitant]

REACTIONS (2)
  - HYPOAESTHESIA ORAL [None]
  - HYPOGEUSIA [None]
